FAERS Safety Report 5013735-7 (Version None)
Quarter: 2006Q2

REPORT INFORMATION
  Report Type: 
  Country: None (occurrence: None)
  Receive Date: 20060525
  Receipt Date: 20060503
  Transmission Date: 20061013
  Serious: Yes (Other)
  Sender: FDA-Public Use
  Company Number: US200605001079

PATIENT
  Sex: Female

DRUGS (9)
  1. FORTEO [Suspect]
     Indication: OSTEOPOROSIS
     Dosage: 20 UG
     Dates: start: 20050914
  2. FORTEO [Concomitant]
  3. SYNTHROID [Concomitant]
  4. NEXIUM/UNK/(ESOMEPRAZOLE) [Concomitant]
  5. CALCIUM CITRATE (CALCIUM CITRATE) [Concomitant]
  6. ASA (ASPIRIN (ACETYLSALICYLIC ACID) [Concomitant]
  7. VITAMINS-MINERALS THERAPEUTIC (VITAMINS-MINERALS THERAPEUTIC UNKNOWN F [Concomitant]
  8. DIOVAN [Concomitant]
  9. XANAX / USA/(ALPRAZOLAM) [Concomitant]

REACTIONS (3)
  - HEART RATE DECREASED [None]
  - PHARMACEUTICAL PRODUCT COMPLAINT [None]
  - TOOTH EXTRACTION [None]
